FAERS Safety Report 11422223 (Version 2)
Quarter: 2015Q3

REPORT INFORMATION
  Report Type: Spontaneous
  Country: JP (occurrence: JP)
  Receive Date: 20150827
  Receipt Date: 20150831
  Transmission Date: 20151125
  Serious: Yes (Other)
  Sender: FDA-Public Use
  Company Number: PHHY2015JP100956

PATIENT
  Age: 81 Year
  Sex: Female
  Weight: 34 kg

DRUGS (8)
  1. REGORAFENIB [Concomitant]
     Active Substance: REGORAFENIB
     Indication: METASTASES TO PERITONEUM
     Dosage: 80 MG, QD
     Route: 065
  2. IMATINIB [Suspect]
     Active Substance: IMATINIB
     Indication: GASTROINTESTINAL STROMAL TUMOUR
     Dosage: 400 MG, QD
     Route: 065
  3. SUNITINIB [Suspect]
     Active Substance: SUNITINIB
     Indication: GASTROINTESTINAL STROMAL TUMOUR
     Dosage: 25 MG, QD
     Route: 065
  4. SUNITINIB [Suspect]
     Active Substance: SUNITINIB
     Dosage: 12.5 MG, QD
     Route: 065
  5. REGORAFENIB [Concomitant]
     Active Substance: REGORAFENIB
     Indication: METASTASES TO LIVER
     Dosage: 160 MG, QD
     Route: 065
  6. PREDNISOLONE. [Suspect]
     Active Substance: PREDNISOLONE
     Indication: PRODUCT USED FOR UNKNOWN INDICATION
     Dosage: 30 MG, QD
     Route: 065
  7. IMATINIB [Suspect]
     Active Substance: IMATINIB
     Indication: METASTASES TO LIVER
     Dosage: 100 UNK, UNK
     Route: 065
  8. SUNITINIB [Suspect]
     Active Substance: SUNITINIB
     Indication: METASTASES TO LIVER
     Dosage: 80 MG, QD
     Route: 065

REACTIONS (12)
  - Metastases to peritoneum [Recovering/Resolving]
  - Dysgeusia [Unknown]
  - Gastrointestinal toxicity [Unknown]
  - Malignant neoplasm progression [Unknown]
  - Hypoaesthesia [Unknown]
  - Drug intolerance [Unknown]
  - Metastases to liver [Recovered/Resolved]
  - Cholecystitis [Unknown]
  - Rash [Unknown]
  - Hepatic neoplasm [Unknown]
  - Nodule [Unknown]
  - Drug ineffective [Unknown]
